FAERS Safety Report 8837508 (Version 2)
Quarter: 2012Q4

REPORT INFORMATION
  Report Type: 
  Country: PE (occurrence: PE)
  Receive Date: 20121012
  Receipt Date: 20121016
  Transmission Date: 20130627
  Serious: Yes (Hospitalization, Other)
  Sender: FDA-Public Use
  Company Number: PE-PFIZER INC-2012250475

PATIENT
  Age: 65 Year
  Sex: Male

DRUGS (3)
  1. XANAX XR [Suspect]
     Indication: ANXIETY
     Dosage: 1 mg, 1x/day
     Route: 048
     Dates: start: 2010
  2. CANDESARTAN [Concomitant]
     Dosage: UNK
     Route: 048
     Dates: start: 2010
  3. BARNIDIPINE [Concomitant]
     Dosage: UNK
     Route: 048
     Dates: start: 2010

REACTIONS (1)
  - Prostatic disorder [Recovering/Resolving]
